FAERS Safety Report 24602217 (Version 1)
Quarter: 2024Q4

REPORT INFORMATION
  Report Type: Report from Study
  Country: ES (occurrence: ES)
  Receive Date: 20241111
  Receipt Date: 20241111
  Transmission Date: 20250115
  Serious: Yes (Death, Other)
  Sender: ACCORD
  Company Number: ES-EMA-DD-20241010-7482705-130505

PATIENT
  Age: 64 Year
  Sex: Male

DRUGS (23)
  1. BUSULFAN [Suspect]
     Active Substance: BUSULFAN
     Indication: Prophylaxis against transplant rejection
  2. CARBOPLATIN [Suspect]
     Active Substance: CARBOPLATIN
     Indication: Mantle cell lymphoma
  3. ETOPOSIDE [Suspect]
     Active Substance: ETOPOSIDE
     Indication: Mantle cell lymphoma
  4. GEMCITABINE [Suspect]
     Active Substance: GEMCITABINE
     Indication: Mantle cell lymphoma
  5. MYCOPHENOLATE MOFETIL [Suspect]
     Active Substance: MYCOPHENOLATE MOFETIL
     Indication: Prophylaxis against transplant rejection
  6. ACYCLOVIR [Suspect]
     Active Substance: ACYCLOVIR
     Indication: Infection prophylaxis
  7. FLUDARABINE [Suspect]
     Active Substance: FLUDARABINE PHOSPHATE
     Indication: Prophylaxis against transplant rejection
  8. OXALIPLATIN [Suspect]
     Active Substance: OXALIPLATIN
     Indication: Mantle cell lymphoma
  9. POSACONAZOLE [Suspect]
     Active Substance: POSACONAZOLE
     Indication: Infection prophylaxis
  10. DOXORUBICIN [Suspect]
     Active Substance: DOXORUBICIN
     Indication: Mantle cell lymphoma
  11. THIOTEPA [Suspect]
     Active Substance: THIOTEPA
     Indication: Prophylaxis against transplant rejection
  12. CYCLOPHOSPHAMIDE [Suspect]
     Active Substance: CYCLOPHOSPHAMIDE
     Indication: Prophylaxis against transplant rejection
  13. DEXAMETHASONE [Suspect]
     Active Substance: DEXAMETHASONE
     Indication: Mantle cell lymphoma
  14. GLOFITAMAB [Suspect]
     Active Substance: GLOFITAMAB
     Indication: Mantle cell lymphoma
     Dosage: 10 MG AT DAY +1 OF EACH CYCLE (NO. OF BSAB DOSES: 4)
  15. IBRUTINIB [Suspect]
     Active Substance: IBRUTINIB
     Indication: Mantle cell lymphoma
  16. IFOSFAMIDE [Suspect]
     Active Substance: IFOSFAMIDE
     Indication: Mantle cell lymphoma
  17. OBINUTUZUMAB [Suspect]
     Active Substance: OBINUTUZUMAB
     Indication: Mantle cell lymphoma
     Dosage: 1000 MG (NO. OF BSAB DOSES: 4)
  18. PENTAMIDINE [Suspect]
     Active Substance: PENTAMIDINE
     Indication: Infection prophylaxis
  19. POLATUZUMAB VEDOTIN [Suspect]
     Active Substance: POLATUZUMAB VEDOTIN
     Indication: Mantle cell lymphoma
     Dosage: AT DAY +1 OF EACH CYCLE (NO. OF BSAB DOSES: 4)
  20. RITUXIMAB [Suspect]
     Active Substance: RITUXIMAB
     Indication: Mantle cell lymphoma
  21. TACROLIMUS [Suspect]
     Active Substance: TACROLIMUS
     Indication: Prophylaxis against transplant rejection
  22. SULFAMETHOXAZOLE\TRIMETHOPRIM [Suspect]
     Active Substance: SULFAMETHOXAZOLE\TRIMETHOPRIM
     Indication: Infection prophylaxis
  23. VINCRISTINE [Suspect]
     Active Substance: VINCRISTINE
     Indication: Mantle cell lymphoma

REACTIONS (4)
  - Graft versus host disease [Fatal]
  - Chronic graft versus host disease [Unknown]
  - Graft versus host disease in gastrointestinal tract [Fatal]
  - Infection [Fatal]
